FAERS Safety Report 16769246 (Version 3)
Quarter: 2020Q1

REPORT INFORMATION
  Report Type: Spontaneous
  Country: GB (occurrence: GB)
  Receive Date: 20190903
  Receipt Date: 20200205
  Transmission Date: 20200409
  Serious: Yes (Death)
  Sender: FDA-Public Use
  Company Number: PHHY2019GB203570

PATIENT
  Age: 14 Year
  Sex: Male

DRUGS (8)
  1. FLUDARABINE [Suspect]
     Active Substance: FLUDARABINE PHOSPHATE
     Indication: CHOLANGITIS SCLEROSING
     Dosage: UNK UNK, UNK
     Route: 065
  2. CAMPATH [Suspect]
     Active Substance: ALEMTUZUMAB
     Indication: PRIMARY IMMUNODEFICIENCY SYNDROME
  3. MELPHALAN. [Suspect]
     Active Substance: MELPHALAN
     Indication: PRIMARY IMMUNODEFICIENCY SYNDROME
  4. FLUDARABINE [Suspect]
     Active Substance: FLUDARABINE PHOSPHATE
     Indication: PRIMARY IMMUNODEFICIENCY SYNDROME
  5. CAMPATH [Suspect]
     Active Substance: ALEMTUZUMAB
     Indication: CHOLANGITIS SCLEROSING
     Dosage: UNK UNK, UNK
     Route: 065
  6. MYCOPHENOLATE MOFETIL. [Concomitant]
     Active Substance: MYCOPHENOLATE MOFETIL
     Indication: PROPHYLAXIS AGAINST GRAFT VERSUS HOST DISEASE
     Dosage: UNK
     Route: 065
  7. CYCLOSPORIN A [Concomitant]
     Active Substance: CYCLOSPORINE
     Indication: PROPHYLAXIS AGAINST GRAFT VERSUS HOST DISEASE
     Dosage: UNK
     Route: 065
  8. MELPHALAN. [Suspect]
     Active Substance: MELPHALAN
     Indication: CHOLANGITIS SCLEROSING
     Dosage: UNK, UNK
     Route: 065

REACTIONS (4)
  - Multiple organ dysfunction syndrome [Fatal]
  - Cryptosporidiosis infection [Fatal]
  - Off label use [Unknown]
  - Encephalitis cytomegalovirus [Fatal]

NARRATIVE: CASE EVENT DATE: 2019
